FAERS Safety Report 12111872 (Version 1)
Quarter: 2016Q1

REPORT INFORMATION
  Report Type: Report from Study
  Country: US (occurrence: US)
  Receive Date: 20160224
  Receipt Date: 20160224
  Transmission Date: 20160526
  Serious: Yes (Other)
  Sender: FDA-Public Use
  Company Number: US-AMGEN-USASL2016019549

PATIENT
  Age: 40 Year
  Sex: Female

DRUGS (1)
  1. ENBREL [Suspect]
     Active Substance: ETANERCEPT
     Indication: RHEUMATOID ARTHRITIS
     Dosage: 50 MG, QWK
     Route: 065
     Dates: start: 20160211

REACTIONS (5)
  - Hyperhidrosis [Unknown]
  - Feeling abnormal [Unknown]
  - Cold sweat [Unknown]
  - Feeling hot [Unknown]
  - Anxiety [Unknown]

NARRATIVE: CASE EVENT DATE: 201602
